FAERS Safety Report 9458357 (Version 2)
Quarter: 2016Q3

REPORT INFORMATION
  Report Type: Report from Study
  Country: US (occurrence: US)
  Receive Date: 20130814
  Receipt Date: 20160929
  Transmission Date: 20161109
  Serious: Yes (Hospitalization, Other)
  Sender: FDA-Public Use
  Company Number: US-ROCHE-1002956

PATIENT
  Age: 66 Year
  Sex: Female
  Weight: 54.3 kg

DRUGS (6)
  1. BEVACIZUMAB [Suspect]
     Active Substance: BEVACIZUMAB
     Indication: OVARIAN CANCER
     Dosage: TOTAL DOSE ADMINISTERED: 1184 MG
     Route: 042
     Dates: start: 20110411
  2. BEVACIZUMAB [Suspect]
     Active Substance: BEVACIZUMAB
     Dosage: TOTAL DOSE ADMINISTERED: 1148 MG
     Route: 042
     Dates: start: 20110607
  3. TEMSIROLIMUS [Suspect]
     Active Substance: TEMSIROLIMUS
     Indication: OVARIAN CANCER
     Dosage: TOTAL DOSE ADMINISTERED: 100 MG. ALSO RECEIVED ON: 09/MAY/2011, 07/JUN/2011, 05/JUL/2011 AND 01/AUG/
     Route: 042
     Dates: start: 20110411, end: 20140416
  4. BEVACIZUMAB [Suspect]
     Active Substance: BEVACIZUMAB
     Dosage: TOTAL DOSE ADMINISTERED: 1134 MG
     Route: 042
     Dates: start: 20110705
  5. BEVACIZUMAB [Suspect]
     Active Substance: BEVACIZUMAB
     Dosage: TOTAL DOSE ADMINISTERED: 1150 MG
     Route: 042
     Dates: start: 20110509
  6. BEVACIZUMAB [Suspect]
     Active Substance: BEVACIZUMAB
     Dosage: TOTAL DOSE ADMINISTERED: 1080 MG?LAST ADMINISTERED DATE: 22/AUG/2011
     Route: 042
     Dates: start: 20110801, end: 20140416

REACTIONS (9)
  - Acute coronary syndrome [Unknown]
  - Hypokalaemia [Unknown]
  - Upper respiratory tract infection [Not Recovered/Not Resolved]
  - Lung infection [Unknown]
  - Myocardial infarction [Not Recovered/Not Resolved]
  - Hip fracture [Not Recovered/Not Resolved]
  - Hyponatraemia [Recovered/Resolved]
  - Left ventricular dysfunction [Not Recovered/Not Resolved]
  - Fracture [Unknown]

NARRATIVE: CASE EVENT DATE: 20110829
